FAERS Safety Report 12930968 (Version 1)
Quarter: 2016Q4

REPORT INFORMATION
  Report Type: Report from Study
  Country: JP (occurrence: JP)
  Receive Date: 20161110
  Receipt Date: 20161110
  Transmission Date: 20170207
  Serious: Yes (Hospitalization)
  Sender: FDA-Public Use
  Company Number: JP-SHIRE-JP201615194

PATIENT
  Age: 42 Year
  Sex: Male
  Weight: 64.4 kg

DRUGS (14)
  1. ZOLPIDEM TARTRATE. [Concomitant]
     Active Substance: ZOLPIDEM TARTRATE
     Indication: PROPHYLAXIS
     Dosage: UNK, UNKNOWN
     Dates: start: 20141212
  2. MINERIC 5 [Concomitant]
     Indication: SHORT-BOWEL SYNDROME
     Dosage: UNK, UNKNOWN
     Route: 065
     Dates: start: 20141021
  3. ELNEOPA NO.1 [Concomitant]
     Indication: SHORT-BOWEL SYNDROME
     Dosage: UNK, UNKNOWN
     Route: 065
     Dates: start: 20110202
  4. TEDUGLUTIDE [Suspect]
     Active Substance: TEDUGLUTIDE
     Indication: SHORT-BOWEL SYNDROME
     Dosage: 3.7 MG, 1X/DAY:QD
     Route: 058
     Dates: start: 20150325
  5. ATARAX-P                           /00058402/ [Concomitant]
     Active Substance: HYDROXYZINE HYDROCHLORIDE
     Indication: PROPHYLAXIS
     Dosage: UNK UNK, UNKNOWN
     Route: 065
     Dates: start: 20080919
  6. BENZALIN                           /00036201/ [Concomitant]
     Active Substance: NITRAZEPAM
     Indication: PROPHYLAXIS
     Dosage: UNK, UNKNOWN
     Route: 065
     Dates: start: 20140620
  7. ZYPREXA [Concomitant]
     Active Substance: OLANZAPINE
     Indication: PROPHYLAXIS
     Dosage: UNK, UNKNOWN
     Route: 065
     Dates: start: 20141205
  8. PYRETHIA                           /00033002/ [Concomitant]
     Indication: PROPHYLAXIS
     Dosage: UNK, UNKNOWN
     Route: 065
     Dates: start: 20110518
  9. HUMIRA [Concomitant]
     Active Substance: ADALIMUMAB
     Indication: CROHN^S DISEASE
     Dosage: UNK, UNKNOWN
     Route: 065
     Dates: start: 20110302
  10. COLONEL [Concomitant]
     Active Substance: CALCIUM POLYCARBOPHIL
     Indication: CROHN^S DISEASE
     Dosage: UNK, UNKNOWN
     Route: 065
     Dates: start: 20141202
  11. GLUCONSAN K [Concomitant]
     Indication: PROPHYLAXIS
     Dosage: UNK, UNKNOWN
     Route: 065
     Dates: start: 20140724
  12. HORIZON [Concomitant]
     Active Substance: DIAZEPAM
     Indication: PROPHYLAXIS
     Dosage: UNK, UNKNOWN
     Route: 065
     Dates: start: 20140507
  13. TAKEPRON [Concomitant]
     Active Substance: LANSOPRAZOLE
     Indication: CROHN^S DISEASE
     Dosage: UNK, UNKNOWN
     Dates: start: 20141218
  14. SOLDEM 3A [Concomitant]
     Active Substance: CARBOHYDRATES\POTASSIUM CHLORIDE\SODIUM CHLORIDE\SODIUM LACTATE
     Indication: SHORT-BOWEL SYNDROME
     Dosage: UNK, UNKNOWN
     Route: 065

REACTIONS (1)
  - Pyrexia [Recovered/Resolved]

NARRATIVE: CASE EVENT DATE: 20161017
